FAERS Safety Report 6393852-X (Version None)
Quarter: 2009Q4

REPORT INFORMATION
  Report Type: 
  Country: None (occurrence: None)
  Receive Date: 20091008
  Receipt Date: 20090928
  Transmission Date: 20100525
  Serious: Yes (Other)
  Sender: FDA-Public Use
  Company Number: AT-CELGENEUS-009-21880-09040048

PATIENT
  Sex: Male

DRUGS (13)
  1. REVLIMID [Suspect]
     Indication: MULTIPLE MYELOMA
     Route: 048
     Dates: start: 20080603
  2. REVLIMID [Suspect]
     Route: 048
     Dates: start: 20080702
  3. REVLIMID [Suspect]
     Route: 048
     Dates: start: 20080801
  4. REVLIMID [Suspect]
     Route: 048
     Dates: start: 20080829
  5. DEXAMETHASONE 0.5MG TAB [Concomitant]
     Indication: MULTIPLE MYELOMA
     Route: 048
     Dates: start: 20080603
  6. DEXAMETHASONE 0.5MG TAB [Concomitant]
     Route: 048
     Dates: start: 20080702
  7. DEXAMETHASONE 0.5MG TAB [Concomitant]
     Route: 048
     Dates: start: 20080801
  8. ASPIRIN [Concomitant]
     Indication: THROMBOSIS PROPHYLAXIS
     Route: 065
  9. LASIX [Concomitant]
     Indication: OEDEMA
     Route: 065
  10. ALNA RETARD [Concomitant]
     Route: 065
  11. PANTOPRAZOLE [Concomitant]
     Indication: PROPHYLAXIS
     Route: 065
  12. EUTHROID-1 [Concomitant]
     Indication: HYPOTHYROIDISM
     Route: 065
  13. ASPIRIN [Concomitant]
     Indication: CARDIAC DISORDER
     Route: 065

REACTIONS (2)
  - GENERAL PHYSICAL HEALTH DETERIORATION [None]
  - GLOMERULONEPHRITIS [None]
